FAERS Safety Report 24817356 (Version 4)
Quarter: 2025Q1

REPORT INFORMATION
  Report Type: Spontaneous
  Country: CN (occurrence: CN)
  Receive Date: 20250108
  Receipt Date: 20250218
  Transmission Date: 20250409
  Serious: Yes (Other)
  Sender: JIANGSU HENGRUI
  Company Number: CN-JIANGSU HENGRUI PHARMACEUTICALS CO., LTD.-H2024001207811

PATIENT
  Age: 14 Year

DRUGS (9)
  1. CYCLOPHOSPHAMIDE [Suspect]
     Active Substance: CYCLOPHOSPHAMIDE
     Indication: Prophylaxis against graft versus host disease
  2. CYCLOPHOSPHAMIDE [Suspect]
     Active Substance: CYCLOPHOSPHAMIDE
     Indication: Chronic graft versus host disease in lung
  3. TACROLIMUS [Suspect]
     Active Substance: TACROLIMUS
     Indication: Prophylaxis against transplant rejection
  4. CYCLOSPORINE [Suspect]
     Active Substance: CYCLOSPORINE
     Indication: Prophylaxis against graft versus host disease
  5. RUXOLITINIB [Suspect]
     Active Substance: RUXOLITINIB
     Indication: Graft versus host disease in lung
  6. MYCOPHENOLATE MOFETIL [Suspect]
     Active Substance: MYCOPHENOLATE MOFETIL
     Indication: Graft versus host disease in lung
  7. IDARUBICIN [Concomitant]
     Active Substance: IDARUBICIN
     Indication: T-cell lymphoma
  8. CLADRIBINE [Concomitant]
     Active Substance: CLADRIBINE
     Indication: T-cell lymphoma
  9. CYTARABINE [Concomitant]
     Active Substance: CYTARABINE
     Indication: T-cell lymphoma

REACTIONS (2)
  - Neutrophil morphology abnormal [Unknown]
  - Gastrointestinal mucormycosis [Unknown]
